FAERS Safety Report 14010906 (Version 2)
Quarter: 2018Q2

REPORT INFORMATION
  Report Type: Spontaneous
  Country: US (occurrence: US)
  Receive Date: 20170926
  Receipt Date: 20180430
  Transmission Date: 20180711
  Serious: No
  Sender: FDA-Public Use
  Company Number: US-PFIZER INC-2017410145

PATIENT
  Age: 61 Year
  Sex: Female

DRUGS (3)
  1. EMBEDA [Suspect]
     Active Substance: MORPHINE SULFATE\NALTREXONE HYDROCHLORIDE
     Indication: BACK PAIN
     Dosage: 20 MG TWICE DAILY
     Route: 048
     Dates: start: 20170920
  2. EMBEDA [Suspect]
     Active Substance: MORPHINE SULFATE\NALTREXONE HYDROCHLORIDE
     Dosage: 20 MG TWICE DAILY
     Route: 048
     Dates: start: 20170916
  3. EMBEDA [Suspect]
     Active Substance: MORPHINE SULFATE\NALTREXONE HYDROCHLORIDE
     Indication: CARDIO-RESPIRATORY ARREST
     Dosage: 20 MG, UNK
     Dates: start: 20170918

REACTIONS (2)
  - Somnolence [Unknown]
  - Pain [Unknown]
